FAERS Safety Report 10159362 (Version 1)
Quarter: 2014Q2

REPORT INFORMATION
  Report Type: Spontaneous
  Country: US (occurrence: US)
  Receive Date: 20140508
  Receipt Date: 20140508
  Transmission Date: 20141212
  Serious: No
  Sender: FDA-Public Use
  Company Number: US-009507513-1405USA001558

PATIENT
  Sex: Female

DRUGS (1)
  1. CLARITIN REDITABS 12HR [Suspect]
     Indication: NASAL CONGESTION
     Dosage: 5 MG, BID
     Route: 048
     Dates: start: 20140420

REACTIONS (3)
  - Inappropriate schedule of drug administration [Unknown]
  - Off label use [Unknown]
  - Drug ineffective [Unknown]
